FAERS Safety Report 12454483 (Version 1)
Quarter: 2016Q2

REPORT INFORMATION
  Report Type: Spontaneous
  Country: IN (occurrence: None)
  Receive Date: 20160609
  Receipt Date: 20160609
  Transmission Date: 20160815
  Serious: No
  Sender: FDA-Public Use
  Company Number: None

PATIENT
  Age: 37 Year
  Sex: Female

DRUGS (1)
  1. MIRENA [Suspect]
     Active Substance: LEVONORGESTREL
     Dates: start: 20151201, end: 20160115

REACTIONS (5)
  - Insomnia [None]
  - Suicidal ideation [None]
  - Irritability [None]
  - Mood swings [None]
  - Depression [None]

NARRATIVE: CASE EVENT DATE: 20151210
